FAERS Safety Report 5292255-9 (Version None)
Quarter: 2007Q2

REPORT INFORMATION
  Report Type: 
  Country: None (occurrence: None)
  Receive Date: 20070410
  Receipt Date: 20070330
  Transmission Date: 20071010
  Serious: Yes (Other)
  Sender: FDA-Public Use
  Company Number: US-ROCHE-490435

PATIENT
  Age: 45 Year
  Sex: Female
  Weight: 54.9 kg

DRUGS (1)
  1. BONIVA [Suspect]
     Indication: DRUG USE FOR UNKNOWN INDICATION
     Route: 048
     Dates: end: 20070109

REACTIONS (3)
  - FAILURE OF IMPLANT [None]
  - JAW DISORDER [None]
  - NO THERAPEUTIC RESPONSE [None]
